FAERS Safety Report 6426010-0 (Version None)
Quarter: 2009Q4

REPORT INFORMATION
  Report Type: 
  Country: None (occurrence: None)
  Receive Date: 20091104
  Receipt Date: 20091024
  Transmission Date: 20100525
  Serious: Yes (Hospitalization, Other)
  Sender: FDA-Public Use
  Company Number: IN-RANBAXY-2009R1-28847

PATIENT

DRUGS (1)
  1. CEFAZOLIN [Suspect]
     Indication: DRUG USE FOR UNKNOWN INDICATION
     Dosage: 1 G, UNK
     Route: 042

REACTIONS (4)
  - ANAPHYLACTIC REACTION [None]
  - BRADYCARDIA [None]
  - HYPOTENSION [None]
  - LOSS OF CONSCIOUSNESS [None]
